FAERS Safety Report 5435536-8 (Version None)
Quarter: 2007Q3

REPORT INFORMATION
  Report Type: 
  Country: None (occurrence: None)
  Receive Date: 20070831
  Receipt Date: 20070821
  Transmission Date: 20080115
  Serious: No
  Sender: FDA-Public Use
  Company Number: A0671079A

PATIENT

DRUGS (1)
  1. ALLI [Suspect]
     Dates: start: 20070618

REACTIONS (4)
  - HEADACHE [None]
  - MIGRAINE [None]
  - NAUSEA [None]
  - VOMITING [None]
